FAERS Safety Report 12541566 (Version 2)
Quarter: 2016Q3

REPORT INFORMATION
  Report Type: Spontaneous
  Country: FR (occurrence: FR)
  Receive Date: 20160708
  Receipt Date: 20160722
  Transmission Date: 20161109
  Serious: Yes (Other)
  Sender: FDA-Public Use
  Company Number: FR-SA-2016SA123188

PATIENT
  Age: 43 Year
  Sex: Female

DRUGS (16)
  1. LOVENOX [Suspect]
     Active Substance: ENOXAPARIN SODIUM
     Indication: THROMBOSIS PROPHYLAXIS
     Route: 058
     Dates: start: 20150507, end: 20150515
  2. EUPANTOL [Suspect]
     Active Substance: PANTOPRAZOLE SODIUM
     Indication: PROPHYLAXIS AGAINST GASTROINTESTINAL ULCER
     Route: 042
     Dates: start: 20150430, end: 20150506
  3. DROLEPTAN [Concomitant]
     Active Substance: DROPERIDOL
     Dates: start: 20150503
  4. ZOPHREN [Concomitant]
     Active Substance: ONDANSETRON
     Dates: start: 20150503
  5. EUPANTOL [Suspect]
     Active Substance: PANTOPRAZOLE SODIUM
     Indication: PROPHYLAXIS AGAINST GASTROINTESTINAL ULCER
     Dosage: FORM- GASTRO-RESISTANT TABLETS
     Route: 048
     Dates: start: 20150507, end: 20150513
  6. DALACINE [Suspect]
     Active Substance: CLINDAMYCIN HYDROCHLORIDE
     Indication: ERYSIPELAS
     Route: 042
     Dates: start: 20150429, end: 20150512
  7. GENTAMICIN. [Concomitant]
     Active Substance: GENTAMICIN
     Dates: start: 20150429
  8. OFLOCET [Suspect]
     Active Substance: OFLOXACIN
     Indication: ESCHERICHIA URINARY TRACT INFECTION
     Dosage: STRENGTH- 200 MG FIL COATED DIVISIBLE TABLET AND 200 MG/40 ML , INJECTABLE SOLUTION FOR INFUSION
     Route: 042
     Dates: start: 20150501, end: 20150507
  9. LOVENOX [Suspect]
     Active Substance: ENOXAPARIN SODIUM
     Indication: THROMBOSIS PROPHYLAXIS
     Route: 065
     Dates: start: 20150428
  10. VANCOMYCIN [Concomitant]
     Active Substance: VANCOMYCIN
     Dates: start: 20150429
  11. ACTISKENAN [Suspect]
     Active Substance: MORPHINE SULFATE
     Indication: PAIN
     Dosage: DOSE- 5 MG AT THE REQUEST
     Route: 048
     Dates: start: 20150503, end: 20150513
  12. PYOSTACINE [Concomitant]
     Active Substance: PRISTINAMYCIN
     Dates: end: 20150429
  13. OFLOCET [Suspect]
     Active Substance: OFLOXACIN
     Indication: ESCHERICHIA URINARY TRACT INFECTION
     Dosage: FORM-FILM COATED DIVISIBLE TABLET
     Route: 048
     Dates: start: 20150507, end: 20150509
  14. INSULIN [Concomitant]
     Active Substance: INSULIN NOS
     Dates: start: 20150428
  15. PYOSTACINE [Concomitant]
     Active Substance: PRISTINAMYCIN
     Dates: start: 20150510
  16. HEPARIN SODIUM. [Concomitant]
     Active Substance: HEPARIN SODIUM
     Dosage: ROUTE: INJECT ELECTRIC SYRINGE
     Dates: start: 20150429

REACTIONS (2)
  - Urticaria [Recovered/Resolved]
  - Lip oedema [Recovered/Resolved]

NARRATIVE: CASE EVENT DATE: 20150509
